FAERS Safety Report 12409467 (Version 1)
Quarter: 2016Q2

REPORT INFORMATION
  Report Type: Report from Study
  Country: JP (occurrence: JP)
  Receive Date: 20160526
  Receipt Date: 20160526
  Transmission Date: 20160815
  Serious: Yes (Hospitalization)
  Sender: FDA-Public Use
  Company Number: JP-ASTRAZENECA-2016SE54713

PATIENT
  Age: 76 Year
  Sex: Female
  Weight: 55 kg

DRUGS (15)
  1. ALFACALCIDOL [Concomitant]
     Active Substance: ALFACALCIDOL
     Route: 048
     Dates: end: 20160205
  2. METGLUCO [Concomitant]
     Active Substance: METFORMIN HYDROCHLORIDE
     Indication: TYPE 2 DIABETES MELLITUS
     Route: 048
     Dates: end: 20151025
  3. TOCOPHEROL NICOTINATE [Concomitant]
     Active Substance: TOCOPHERYL NICOTINATE, D-.ALPHA.
     Route: 048
     Dates: end: 20151025
  4. TOCOPHEROL NICOTINATE [Concomitant]
     Active Substance: TOCOPHERYL NICOTINATE, D-.ALPHA.
     Dosage: 200 MG TWO TIMES A DAY
     Route: 048
     Dates: start: 20151026, end: 20160205
  5. REZALTAS [Concomitant]
     Active Substance: AZELNIDIPINE\OLMESARTAN MEDOXOMIL
     Dosage: HIGH DOSE
     Route: 048
     Dates: end: 20151025
  6. EBRANTIL [Concomitant]
     Active Substance: URAPIDIL
     Route: 048
     Dates: end: 20160107
  7. ZOLPIDEM TARTRATE. [Concomitant]
     Active Substance: ZOLPIDEM TARTRATE
     Dosage: AS NEEDED
     Route: 048
     Dates: end: 20160205
  8. TENELIA [Concomitant]
     Active Substance: TENELIGLIPTIN
     Indication: TYPE 2 DIABETES MELLITUS
     Route: 048
     Dates: end: 20150514
  9. METGLUCO [Concomitant]
     Active Substance: METFORMIN HYDROCHLORIDE
     Indication: TYPE 2 DIABETES MELLITUS
     Dosage: 250 MG TWO TIMES A DAY
     Route: 048
     Dates: start: 20151026, end: 20151123
  10. LIMAPROST ALFADEX [Concomitant]
     Active Substance: LIMAPROST
     Route: 048
     Dates: end: 20151027
  11. TENELIA [Concomitant]
     Active Substance: TENELIGLIPTIN
     Indication: TYPE 2 DIABETES MELLITUS
     Dates: end: 20150513
  12. FORXIGA [Suspect]
     Active Substance: DAPAGLIFLOZIN
     Indication: TYPE 2 DIABETES MELLITUS
     Route: 048
     Dates: start: 20150715, end: 20160205
  13. PITAVASTATIN [Concomitant]
     Active Substance: PITAVASTATIN
     Route: 048
     Dates: end: 20160205
  14. FORXIGA [Suspect]
     Active Substance: DAPAGLIFLOZIN
     Indication: TYPE 2 DIABETES MELLITUS
     Route: 048
     Dates: start: 20150514, end: 20150710
  15. GLACTIV [Concomitant]
     Active Substance: SITAGLIPTIN
     Indication: TYPE 2 DIABETES MELLITUS
     Route: 048
     Dates: start: 20150612, end: 20160205

REACTIONS (3)
  - Cervix carcinoma [Unknown]
  - Hypertension [Recovering/Resolving]
  - Cystitis [Recovered/Resolved]

NARRATIVE: CASE EVENT DATE: 20150710
